FAERS Safety Report 9555197 (Version 1)
Quarter: 2013Q3

REPORT INFORMATION
  Report Type: Spontaneous
  Country: US (occurrence: None)
  Receive Date: 20130913
  Receipt Date: 20130913
  Transmission Date: 20140515
  Serious: Yes (Life-Threatening)
  Sender: FDA-Public Use
  Company Number: 1458287

PATIENT
  Sex: Male

DRUGS (2)
  1. LEVOPHED [Suspect]
  2. DOBUTAMINE [Concomitant]

REACTIONS (1)
  - Blood pressure systolic decreased [None]
